FAERS Safety Report 7815632-8 (Version None)
Quarter: 2011Q4

REPORT INFORMATION
  Report Type: 
  Country: None (occurrence: None)
  Receive Date: 20111014
  Receipt Date: 20111010
  Transmission Date: 20120403
  Serious: Yes (Death)
  Sender: FDA-Public Use
  Company Number: GB-ELI_LILLY_AND_COMPANY-GB201110001944

PATIENT
  Age: 75 Year
  Sex: Male
  Weight: 84.9 kg

DRUGS (6)
  1. BENDROFLUMETHIAZIDE [Concomitant]
  2. CISPLATIN [Concomitant]
     Indication: MESOTHELIOMA
     Dosage: 149 MG, UNK
     Route: 042
     Dates: start: 20110603, end: 20110603
  3. VITAMIN B-12 [Concomitant]
  4. SIMVASTATIN [Concomitant]
  5. FOLIC ACID [Concomitant]
  6. PEMETREXED [Suspect]
     Indication: MESOTHELIOMA
     Dosage: 1000 MG, UNK
     Route: 042
     Dates: start: 20110603, end: 20110603

REACTIONS (1)
  - MYOCARDIAL INFARCTION [None]
